FAERS Safety Report 21650340 (Version 6)
Quarter: 2024Q3

REPORT INFORMATION
  Report Type: Spontaneous
  Country: US (occurrence: US)
  Receive Date: 20221128
  Receipt Date: 20240729
  Transmission Date: 20241017
  Serious: No
  Sender: PFIZER
  Company Number: US-PFIZER INC-PV202200109186

PATIENT
  Age: 78 Year
  Sex: Female

DRUGS (3)
  1. XELJANZ XR [Suspect]
     Active Substance: TOFACITINIB CITRATE
     Indication: Rheumatoid arthritis
     Dosage: 6 XELJANZ TABLETS AT THE END OF THE WEEK
  2. XELJANZ XR [Suspect]
     Active Substance: TOFACITINIB CITRATE
     Dosage: 10 MG, DAILY
     Dates: start: 2022
  3. METHOTREXATE [Concomitant]
     Active Substance: METHOTREXATE
     Dosage: UNK

REACTIONS (9)
  - Pain [Unknown]
  - Hypoacusis [Unknown]
  - Bone pain [Unknown]
  - Sensitivity to weather change [Unknown]
  - Intentional product misuse [Unknown]
  - Asthma [Unknown]
  - Off label use [Unknown]
  - Arthritis [Unknown]
  - Renal disorder [Unknown]
